FAERS Safety Report 16208034 (Version 3)
Quarter: 2019Q4

REPORT INFORMATION
  Report Type: Spontaneous
  Country: JP (occurrence: JP)
  Receive Date: 20190417
  Receipt Date: 20191025
  Transmission Date: 20200122
  Serious: Yes (Death, Disabling, Other)
  Sender: FDA-Public Use
  Company Number: JP-BRACCO-2019JP01848

PATIENT
  Age: 68 Year
  Sex: Female

DRUGS (1)
  1. IOPAMIRON [Suspect]
     Active Substance: IOPAMIDOL
     Indication: ANGIOGRAM CEREBRAL
     Dosage: 260 ML, ONCE
     Route: 013
     Dates: start: 20190410, end: 20190410

REACTIONS (2)
  - Contrast encephalopathy [Recovered/Resolved with Sequelae]
  - Blindness cortical [Unknown]

NARRATIVE: CASE EVENT DATE: 20190410
